FAERS Safety Report 9161082 (Version 2)
Quarter: 2013Q2

REPORT INFORMATION
  Report Type: Report from Study
  Country: CA (occurrence: CA)
  Receive Date: 20130313
  Receipt Date: 20130627
  Transmission Date: 20140414
  Serious: Yes (Life-Threatening, Other)
  Sender: FDA-Public Use
  Company Number: CA-UCBSA-080330

PATIENT
  Sex: Female

DRUGS (15)
  1. CIMZIA [Suspect]
     Indication: RHEUMATOID ARTHRITIS
     Dosage: DOSE: 400 MG,WEEK 0, 2 AND 4
     Route: 058
     Dates: start: 20100917, end: 20101015
  2. CIMZIA [Suspect]
     Indication: RHEUMATOID ARTHRITIS
     Route: 058
     Dates: start: 20101029, end: 20121218
  3. FOLIC ACID [Concomitant]
     Dosage: UNKNOWN DOSE
  4. SALBUTAMOL [Concomitant]
     Dosage: UNKNOWN DOSE
  5. VITAMIN B12 [Concomitant]
     Dosage: UNKNOWN DOSE
  6. VITAMIN D [Concomitant]
     Dosage: UNKNOWN DOSE
  7. IRON SUPPLEMENT [Concomitant]
     Dosage: UNKNOWN DOSE
  8. GLYBURIDE [Concomitant]
     Dosage: UNKNOWN DOSE
  9. LIPITOR [Concomitant]
     Dosage: UNKNOWN DOSE
  10. SYNTHROID [Concomitant]
     Dosage: UNKNOWN DOSE
  11. METFORMIN [Concomitant]
     Dosage: UNKNOWN DOSE
  12. CALCIUM [Concomitant]
     Dosage: UNKNOWN DOSE
  13. OLANZAPINE [Concomitant]
     Dosage: UNKNOWN DOSE
  14. TYLENOL [Concomitant]
     Dosage: UNKNOWN DOSE
  15. METHOTREXATE [Concomitant]
     Dosage: UNKNOWN DOSE

REACTIONS (2)
  - Anaemia [Not Recovered/Not Resolved]
  - Haemorrhage [Unknown]
